FAERS Safety Report 8114847-1 (Version None)
Quarter: 2012Q1

REPORT INFORMATION
  Report Type: 
  Country: None (occurrence: None)
  Receive Date: 20120202
  Receipt Date: 20120202
  Transmission Date: 20120608
  Serious: Yes (Hospitalization)
  Sender: FDA-Public Use
  Company Number: None

PATIENT
  Age: 58 Year
  Sex: Female
  Weight: 117.028 kg

DRUGS (2)
  1. VICODIN [Suspect]
     Indication: OSTEOARTHRITIS
     Dosage: I TOOK ONLY ONE TABLET JUST ONE, DOCTOR AND PHARM TOLD ME TO TAKE NO MORE
     Dates: start: 20120107
  2. VICODIN [Suspect]
     Indication: SCIATICA
     Dosage: I TOOK ONLY ONE TABLET JUST ONE, DOCTOR AND PHARM TOLD ME TO TAKE NO MORE
     Dates: start: 20120107

REACTIONS (2)
  - VOMITING [None]
  - NAUSEA [None]
